FAERS Safety Report 6905741-X (Version None)
Quarter: 2010Q3

REPORT INFORMATION
  Report Type: 
  Country: None (occurrence: None)
  Receive Date: 20100804
  Receipt Date: 20100727
  Transmission Date: 20110219
  Serious: Yes (Death, Other)
  Sender: FDA-Public Use
  Company Number: US-JNJCH-2009031704

PATIENT
  Age: 16 Month
  Sex: Male
  Weight: 11 kg

DRUGS (1)
  1. ASPIRIN [Suspect]
     Indication: UPPER RESPIRATORY TRACT INFECTION
     Dosage: TEXT:90-360 MG EVERY 4 HOURS FOR FOUR DAYS
     Route: 048

REACTIONS (2)
  - THERAPEUTIC AGENT TOXICITY [None]
  - WRONG DRUG ADMINISTERED [None]
